FAERS Safety Report 18621697 (Version 2)
Quarter: 2021Q1

REPORT INFORMATION
  Report Type: Spontaneous
  Country: US (occurrence: US)
  Receive Date: 20201216
  Receipt Date: 20210120
  Transmission Date: 20210419
  Serious: No
  Sender: FDA-Public Use
  Company Number: US-TEVA-2020-US-1857131

PATIENT
  Age: 30 Year
  Sex: Female

DRUGS (6)
  1. TOPAMAX 150 MG [Concomitant]
  2. AJOVY [Suspect]
     Active Substance: FREMANEZUMAB-VFRM
  3. AJOVY [Suspect]
     Active Substance: FREMANEZUMAB-VFRM
     Dosage: 225 MG / 1.5 ML
     Route: 065
  4. BOTOX [Concomitant]
     Active Substance: ONABOTULINUMTOXINA
     Dosage: 200 UNITS EVERY 3 MONTHS
  5. METOPROLOL 25 MG [Concomitant]
     Active Substance: METOPROLOL
  6. NORETHYNDRONE 0.35 MG [Concomitant]

REACTIONS (4)
  - Injection site haemorrhage [Unknown]
  - Accidental exposure to product [Unknown]
  - Incorrect route of product administration [Unknown]
  - Incorrect dose administered [Unknown]

NARRATIVE: CASE EVENT DATE: 20201202
